FAERS Safety Report 7308155-6 (Version None)
Quarter: 2011Q1

REPORT INFORMATION
  Report Type: 
  Country: None (occurrence: None)
  Receive Date: 20110223
  Receipt Date: 20110214
  Transmission Date: 20110831
  Serious: Yes (Hospitalization, Other)
  Sender: FDA-Public Use
  Company Number: GB-B.I. PHARMACEUTICALS,INC./RIDGEFIELD-2011-UK-00141UK

PATIENT
  Age: 83 Year
  Sex: Female

DRUGS (9)
  1. PRADAXA [Suspect]
     Indication: THROMBOSIS PROPHYLAXIS
     Dosage: 150 MG
     Route: 048
     Dates: start: 20110125, end: 20110202
  2. IBUPROFEN [Concomitant]
  3. ENALAPRIL MALEATE [Concomitant]
  4. SIMVASTATIN [Concomitant]
  5. FUROSEMIDE [Concomitant]
  6. OMEPRAZOLE [Concomitant]
  7. ASPIRIN [Concomitant]
     Dosage: 75 MG
  8. AMLODIPINE [Concomitant]
  9. ATENOLOL [Concomitant]

REACTIONS (5)
  - DIZZINESS [None]
  - DIARRHOEA [None]
  - VOMITING [None]
  - HAEMATOCHEZIA [None]
  - ABDOMINAL PAIN [None]
